FAERS Safety Report 9554705 (Version 3)
Quarter: 2013Q4

REPORT INFORMATION
  Report Type: Report from Study
  Country: US (occurrence: US)
  Receive Date: 20130926
  Receipt Date: 20131122
  Transmission Date: 20140711
  Serious: Yes (Hospitalization)
  Sender: FDA-Public Use
  Company Number: US-009507513-1309USA009956

PATIENT
  Age: 64 Year
  Sex: Male

DRUGS (7)
  1. VICTRELIS [Suspect]
     Indication: HEPATITIS C
     Dosage: BEGAN AT WEEK 5
     Route: 048
  2. PEGASYS [Suspect]
     Indication: HEPATITIS C
     Dosage: 180 MICROGRAM, 1 IN 1 WK, FORMULATION: PRE-FILLED SYRINGE
     Route: 058
     Dates: start: 20130710
  3. PEGASYS [Suspect]
     Dosage: 135 MICROGRAM, 1 IN 1 WK
     Route: 058
     Dates: start: 20130710, end: 20131003
  4. PEGASYS [Suspect]
     Dosage: UNK
     Route: 058
     Dates: end: 20131016
  5. REBETOL [Suspect]
     Indication: HEPATITIS C
     Dosage: 800 MG, 1 IN 1 D (DIVIDED DOSES)
     Route: 048
     Dates: start: 20130710
  6. REBETOL [Suspect]
     Dosage: 600 MG, 1 IN 1 D
     Route: 048
     Dates: start: 20130731
  7. REBETOL [Suspect]
     Dosage: 400 MG, 1 IN 1 D
     Route: 048
     Dates: start: 20130925

REACTIONS (5)
  - Haemoglobin decreased [Unknown]
  - Loss of consciousness [Unknown]
  - Decreased appetite [Unknown]
  - Diarrhoea [Unknown]
  - Retinal exudates [Unknown]
